FAERS Safety Report 8895718 (Version 2)
Quarter: 2013Q1

REPORT INFORMATION
  Report Type: Spontaneous
  Country: US (occurrence: US)
  Receive Date: 20121108
  Receipt Date: 20130115
  Transmission Date: 20140127
  Serious: No
  Sender: FDA-Public Use
  Company Number: US-009507513-1210USA013848

PATIENT
  Sex: Female
  Weight: 94.33 kg

DRUGS (1)
  1. NEXPLANON [Suspect]
     Indication: CONTRACEPTION
     Dosage: 1 STANDARD PACKAGE OF PF APPLI OF 1

REACTIONS (4)
  - Device malfunction [Unknown]
  - Complication of device insertion [Unknown]
  - Complication of device insertion [Unknown]
  - No adverse event [Unknown]
